FAERS Safety Report 15329722 (Version 1)
Quarter: 2018Q3

REPORT INFORMATION
  Report Type: Spontaneous
  Country: US (occurrence: US)
  Receive Date: 20180823
  Receipt Date: 20180823
  Transmission Date: 20181010
  Serious: Yes (Other)
  Sender: FDA-Public Use
  Company Number: None

PATIENT
  Age: 6 Year
  Sex: Female
  Weight: 18 kg

DRUGS (2)
  1. MAGNESIUM CITRATE. [Concomitant]
     Active Substance: MAGNESIUM CITRATE
  2. MEMBERS MARK CLEARLAX [Suspect]
     Active Substance: POLYETHYLENE GLYCOL 3350
     Indication: CONSTIPATION
     Dosage: ?          QUANTITY:1 CAP FULL;?
     Route: 048
     Dates: start: 20170910, end: 20170912

REACTIONS (5)
  - Intentional self-injury [None]
  - Crying [None]
  - Emotional disorder [None]
  - Aggression [None]
  - Depression [None]

NARRATIVE: CASE EVENT DATE: 20170912
